FAERS Safety Report 9478256 (Version 1)
Quarter: 2013Q3

REPORT INFORMATION
  Report Type: Spontaneous
  Country: US (occurrence: US)
  Receive Date: 20130827
  Receipt Date: 20130827
  Transmission Date: 20140515
  Serious: Yes (Congenital Anomaly)
  Sender: FDA-Public Use
  Company Number: US-JNJFOC-20130810780

PATIENT
  Sex: 0

DRUGS (1)
  1. STELARA [Suspect]
     Indication: CROHN^S DISEASE
     Route: 064

REACTIONS (3)
  - Congenital anomaly [Not Recovered/Not Resolved]
  - Foetal exposure during pregnancy [Recovered/Resolved]
  - Breast feeding [Recovered/Resolved]
